FAERS Safety Report 10149399 (Version 2)
Quarter: 2014Q2

REPORT INFORMATION
  Report Type: Spontaneous
  Country: US (occurrence: US)
  Receive Date: 20140502
  Receipt Date: 20140508
  Transmission Date: 20141212
  Serious: Yes (Hospitalization)
  Sender: FDA-Public Use
  Company Number: US-DRREDDYS-USA/USA/14/0040012

PATIENT
  Age: 76 Year
  Sex: Female
  Weight: 59.4 kg

DRUGS (1)
  1. CETIRIZINE [Suspect]
     Indication: NASAL CONGESTION
     Route: 048
     Dates: start: 20140418

REACTIONS (2)
  - Pruritus generalised [Recovered/Resolved]
  - Urticaria [Recovered/Resolved]
